FAERS Safety Report 9679118 (Version 1)
Quarter: 2013Q4

REPORT INFORMATION
  Report Type: Spontaneous
  Country: US (occurrence: US)
  Receive Date: 20131108
  Receipt Date: 20131108
  Transmission Date: 20140711
  Serious: No
  Sender: FDA-Public Use
  Company Number: US-009507513-1311USA001582

PATIENT
  Age: 60 Year
  Sex: Female

DRUGS (7)
  1. JANUVIA [Suspect]
     Indication: DIABETES MELLITUS
     Dosage: 100 MG, QD
     Route: 048
     Dates: start: 201011
  2. CRESTOR [Concomitant]
  3. GLIPIZIDE [Concomitant]
  4. METFORMIN [Concomitant]
  5. PRINIVIL [Concomitant]
     Route: 048
  6. NORVASC [Concomitant]
  7. BUMETANIDE [Concomitant]

REACTIONS (2)
  - Weight decreased [Recovering/Resolving]
  - Weight increased [Unknown]
